FAERS Safety Report 6713620-6 (Version None)
Quarter: 2010Q2

REPORT INFORMATION
  Report Type: 
  Country: None (occurrence: None)
  Receive Date: 20100506
  Receipt Date: 20100430
  Transmission Date: 20101027
  Serious: Yes (Life-Threatening, Hospitalization)
  Sender: FDA-Public Use
  Company Number: A0857504A

PATIENT
  Age: 27 Year
  Sex: Female

DRUGS (2)
  1. TREXIMET [Suspect]
     Indication: MIGRAINE
     Dosage: 1TAB AS REQUIRED
     Route: 048
     Dates: start: 20090101, end: 20100301
  2. NO CONCURRENT MEDICATION [Concomitant]

REACTIONS (2)
  - CEREBRAL HAEMORRHAGE [None]
  - SURGERY [None]
